FAERS Safety Report 5085608-5 (Version None)
Quarter: 2006Q3

REPORT INFORMATION
  Report Type: 
  Country: None (occurrence: None)
  Receive Date: 20060822
  Receipt Date: 20060815
  Transmission Date: 20061208
  Serious: Yes (Life-Threatening, Hospitalization, Other)
  Sender: FDA-Public Use
  Company Number: GB-GLAXOSMITHKLINE-B0434784A

PATIENT
  Age: 64 Year
  Sex: Female
  Weight: 65 kg

DRUGS (6)
  1. AMOXICILLIN [Suspect]
     Indication: LOWER RESPIRATORY TRACT INFECTION
     Dosage: 500MG THREE TIMES PER DAY
     Route: 048
     Dates: start: 20060508, end: 20060512
  2. NAPROXEN [Suspect]
     Indication: ARTHRALGIA
     Dosage: 250MG THREE TIMES PER DAY
     Route: 048
     Dates: start: 20051004
  3. ADCAL D3 [Concomitant]
     Indication: OSTEOPOROSIS PROPHYLAXIS
     Route: 048
     Dates: start: 20050330, end: 20060524
  4. BUMETANIDE [Concomitant]
     Indication: OEDEMA
     Dosage: 1MG PER DAY
     Route: 048
     Dates: start: 20051004, end: 20060524
  5. ACETAMINOPHEN W/ CODEINE [Concomitant]
     Indication: ARTHRALGIA
     Route: 048
     Dates: start: 20050301, end: 20060516
  6. KLIOVANCE [Concomitant]
     Indication: HORMONE REPLACEMENT THERAPY
     Dosage: 1UNIT PER DAY
     Route: 048
     Dates: start: 20050331, end: 20060518

REACTIONS (6)
  - AUTOIMMUNE HEPATITIS [None]
  - ENCEPHALITIS [None]
  - HEPATIC NECROSIS [None]
  - JAUNDICE [None]
  - LIVER FUNCTION TEST ABNORMAL [None]
  - THERAPY NON-RESPONDER [None]
